FAERS Safety Report 25842277 (Version 1)
Quarter: 2025Q3

REPORT INFORMATION
  Report Type: Spontaneous
  Country: US (occurrence: US)
  Receive Date: 20250924
  Receipt Date: 20250924
  Transmission Date: 20251021
  Serious: Yes (Life-Threatening, Hospitalization)
  Sender: TEVA
  Company Number: US-TEVA-VS-3374978

PATIENT
  Age: 71 Year
  Sex: Female

DRUGS (2)
  1. BACLOFEN [Suspect]
     Active Substance: BACLOFEN
     Indication: Multiple sclerosis
     Route: 037
  2. CLONIDINE [Concomitant]
     Active Substance: CLONIDINE
     Indication: Multiple sclerosis
     Route: 037

REACTIONS (10)
  - Toxicity to various agents [Recovering/Resolving]
  - Hypothermia [Recovering/Resolving]
  - Coma [Recovering/Resolving]
  - Overdose [Unknown]
  - Hypotension [Recovering/Resolving]
  - Bradycardia [Recovering/Resolving]
  - Motor dysfunction [Recovering/Resolving]
  - Areflexia [Recovering/Resolving]
  - Pulseless electrical activity [Recovering/Resolving]
  - Generalised tonic-clonic seizure [Recovering/Resolving]
